FAERS Safety Report 12201980 (Version 2)
Quarter: 2016Q2

REPORT INFORMATION
  Report Type: Spontaneous
  Country: US (occurrence: US)
  Receive Date: 20160322
  Receipt Date: 20160503
  Transmission Date: 20160815
  Serious: Yes (Hospitalization)
  Sender: FDA-Public Use
  Company Number: US-AKRIMAX-IPN-2016-0008

PATIENT
  Age: 70 Year
  Sex: Female

DRUGS (2)
  1. INNOPRAN XL [Suspect]
     Active Substance: PROPRANOLOL HYDROCHLORIDE
     Indication: HYPERTENSION
     Dosage: ONE 80MG CAPSULE EACH EVENING
     Route: 048
     Dates: start: 2006, end: 20150521
  2. DIOVAN [Concomitant]
     Active Substance: VALSARTAN
     Indication: HYPERTENSION
     Dosage: 80MG EACH MORNING

REACTIONS (6)
  - Rib fracture [Unknown]
  - Pelvic fracture [Unknown]
  - Road traffic accident [Unknown]
  - Pneumothorax [Unknown]
  - Thoracostomy [Unknown]
  - Spinal fracture [Unknown]

NARRATIVE: CASE EVENT DATE: 20150521
